FAERS Safety Report 21094155 (Version 1)
Quarter: 2022Q3

REPORT INFORMATION
  Report Type: Report from Study
  Country: US (occurrence: US)
  Receive Date: 20220718
  Receipt Date: 20220718
  Transmission Date: 20221027
  Serious: Yes (Hospitalization)
  Sender: FDA-Public Use
  Company Number: US-BAYER-2022A098410

PATIENT
  Age: 74 Year
  Sex: Female

DRUGS (3)
  1. ADEMPAS [Suspect]
     Active Substance: RIOCIGUAT
     Indication: Pulmonary arterial hypertension
     Dosage: UNK
  2. ADEMPAS [Suspect]
     Active Substance: RIOCIGUAT
     Indication: Pulmonary arterial hypertension
     Dosage: 2.5 MG, TID
     Route: 048
     Dates: start: 20191011
  3. TYVASO [Concomitant]
     Active Substance: TREPROSTINIL

REACTIONS (3)
  - Hospitalisation [None]
  - Pharyngeal swelling [None]
  - Oropharyngeal pain [None]

NARRATIVE: CASE EVENT DATE: 20220628
